FAERS Safety Report 17424639 (Version 1)
Quarter: 2020Q1

REPORT INFORMATION
  Report Type: Report from Study
  Country: NL (occurrence: NL)
  Receive Date: 20200217
  Receipt Date: 20200217
  Transmission Date: 20200409
  Serious: Yes (Death)
  Sender: FDA-Public Use
  Company Number: NVSC2020NL041817

PATIENT
  Sex: Male

DRUGS (4)
  1. ZOMETA [Suspect]
     Active Substance: ZOLEDRONIC ACID
     Indication: HORMONE-REFRACTORY PROSTATE CANCER
     Dosage: 1 DF (4MG/100ML), (ONCE PER 12 WEEKS)
     Route: 041
  2. ZOMETA [Suspect]
     Active Substance: ZOLEDRONIC ACID
     Dosage: 1 DF (4MG/100ML), (ONCE PER 12 WEEKS)
     Route: 041
     Dates: start: 20191204
  3. ZOMETA [Suspect]
     Active Substance: ZOLEDRONIC ACID
     Dosage: 1 DF (4MG/100ML), (ONCE PER 12 WEEKS)
     Route: 041
     Dates: start: 20181221
  4. ZOMETA [Suspect]
     Active Substance: ZOLEDRONIC ACID
     Dosage: 1 DF (4MG/100ML), (ONCE PER 12 WEEKS)
     Route: 041
     Dates: start: 20200212

REACTIONS (2)
  - Terminal state [Fatal]
  - Inappropriate schedule of product administration [Unknown]
